FAERS Safety Report 16887694 (Version 1)
Quarter: 2019Q4

REPORT INFORMATION
  Report Type: Other
  Country: CA (occurrence: CA)
  Receive Date: 20191005
  Receipt Date: 20191005
  Transmission Date: 20200122
  Serious: Yes (Life-Threatening, Hospitalization, Disabling, Other)
  Sender: FDA-Public Use
  Company Number: CA-APOTEX-2019AP022642

PATIENT
  Age: 30 Year
  Sex: Male
  Weight: 73 kg

DRUGS (5)
  1. SALBUTAMOL [Concomitant]
     Active Substance: ALBUTEROL
     Indication: PRODUCT USED FOR UNKNOWN INDICATION
     Dosage: UNK
     Route: 065
  2. DEXEDRINE [Concomitant]
     Active Substance: DEXTROAMPHETAMINE SULFATE
     Indication: PRODUCT USED FOR UNKNOWN INDICATION
     Dosage: UNK
     Route: 065
  3. NICORETTE [Concomitant]
     Active Substance: NICOTINE
     Indication: PRODUCT USED FOR UNKNOWN INDICATION
     Dosage: UNK
     Route: 065
  4. FLUTICASONE. [Suspect]
     Active Substance: FLUTICASONE
     Indication: OBSTRUCTIVE AIRWAYS DISORDER
     Dosage: UNK
     Route: 065
  5. FLUTICASONE. [Suspect]
     Active Substance: FLUTICASONE
     Indication: PULMONARY CONGESTION
     Dosage: 250.0 UNK, BID (INHALATION)
     Route: 050

REACTIONS (9)
  - Anxiety [Unknown]
  - Potentiating drug interaction [Unknown]
  - Bronchospasm [Unknown]
  - Feeling abnormal [Unknown]
  - Candida infection [Unknown]
  - Sexual dysfunction [Unknown]
  - Aspiration [Unknown]
  - Dyspnoea [Unknown]
  - Urinary incontinence [Unknown]
